FAERS Safety Report 9105506 (Version 2)
Quarter: 2013Q1

REPORT INFORMATION
  Report Type: Spontaneous
  Country: US (occurrence: US)
  Receive Date: 20130221
  Receipt Date: 20130222
  Transmission Date: 20140127
  Serious: Yes (Hospitalization, Other)
  Sender: FDA-Public Use
  Company Number: US-TEVA-340708USA

PATIENT
  Age: 64 Year
  Sex: Male

DRUGS (4)
  1. TREANDA [Suspect]
     Route: 042
  2. RITUXAN [Suspect]
  3. PROCHLORPERAZINE [Concomitant]
  4. PROCHLORPERAZINE MALEATE [Concomitant]

REACTIONS (3)
  - Pyrexia [Recovered/Resolved]
  - Dizziness [Recovered/Resolved]
  - Feeling abnormal [Recovered/Resolved]
